FAERS Safety Report 24533830 (Version 2)
Quarter: 2024Q4

REPORT INFORMATION
  Report Type: Report from Study
  Country: US (occurrence: US)
  Receive Date: 20241022
  Receipt Date: 20241104
  Transmission Date: 20250114
  Serious: Yes (Life-Threatening, Hospitalization)
  Sender: JOHNSON AND JOHNSON
  Company Number: US-JNJFOC-20241057512

PATIENT
  Age: 54 Year
  Sex: Female
  Weight: 62.2 kg

DRUGS (17)
  1. DARZALEX FASPRO [Suspect]
     Active Substance: DARATUMUMAB\HYALURONIDASE-FIHJ
     Indication: Plasma cell myeloma refractory
     Route: 058
     Dates: start: 20240521, end: 20240604
  2. DARZALEX FASPRO [Suspect]
     Active Substance: DARATUMUMAB\HYALURONIDASE-FIHJ
     Route: 058
     Dates: start: 20240611, end: 20240709
  3. DARZALEX FASPRO [Suspect]
     Active Substance: DARATUMUMAB\HYALURONIDASE-FIHJ
     Route: 058
     Dates: start: 20240717, end: 20240730
  4. DARZALEX FASPRO [Suspect]
     Active Substance: DARATUMUMAB\HYALURONIDASE-FIHJ
     Route: 058
     Dates: start: 20240801, end: 20241008
  5. LISAFTOCLAX [Suspect]
     Active Substance: LISAFTOCLAX
     Indication: Plasma cell myeloma refractory
     Route: 048
     Dates: start: 20240521, end: 20240604
  6. LISAFTOCLAX [Suspect]
     Active Substance: LISAFTOCLAX
     Route: 048
     Dates: start: 20240607, end: 20240709
  7. LISAFTOCLAX [Suspect]
     Active Substance: LISAFTOCLAX
     Route: 048
     Dates: start: 20240712, end: 20240924
  8. LISAFTOCLAX [Suspect]
     Active Substance: LISAFTOCLAX
     Route: 048
     Dates: start: 20240930, end: 20241008
  9. DEXAMETHASONE [Suspect]
     Active Substance: DEXAMETHASONE
     Indication: Plasma cell myeloma refractory
     Route: 065
     Dates: start: 20240521, end: 20240604
  10. DEXAMETHASONE [Suspect]
     Active Substance: DEXAMETHASONE
     Route: 065
     Dates: start: 20240611, end: 20240709
  11. DEXAMETHASONE [Suspect]
     Active Substance: DEXAMETHASONE
     Route: 065
     Dates: start: 20240717, end: 20240730
  12. DEXAMETHASONE [Suspect]
     Active Substance: DEXAMETHASONE
     Route: 065
     Dates: start: 20240801, end: 20241008
  13. LENALIDOMIDE [Suspect]
     Active Substance: LENALIDOMIDE
     Indication: Plasma cell myeloma refractory
     Route: 048
     Dates: start: 20240521, end: 20240604
  14. LENALIDOMIDE [Suspect]
     Active Substance: LENALIDOMIDE
     Route: 048
     Dates: start: 20240607, end: 20240709
  15. LENALIDOMIDE [Suspect]
     Active Substance: LENALIDOMIDE
     Route: 048
     Dates: start: 20240717, end: 20240730
  16. LENALIDOMIDE [Suspect]
     Active Substance: LENALIDOMIDE
     Route: 048
     Dates: start: 20240801, end: 20241008
  17. PREDNISONE [Concomitant]
     Active Substance: PREDNISONE
     Indication: Adrenal insufficiency

REACTIONS (2)
  - Pseudomonas infection [Recovering/Resolving]
  - Klebsiella infection [Recovering/Resolving]

NARRATIVE: CASE EVENT DATE: 20241009
